FAERS Safety Report 7993362-X (Version None)
Quarter: 2011Q4

REPORT INFORMATION
  Report Type: 
  Country: None (occurrence: None)
  Receive Date: 20111219
  Receipt Date: 20110426
  Transmission Date: 20120403
  Serious: No
  Sender: FDA-Public Use
  Company Number: US-ASTRAZENECA-2011SE25127

PATIENT
  Age: 64 Year
  Sex: Male

DRUGS (3)
  1. ZOCOR [Concomitant]
  2. CRESTOR [Suspect]
     Route: 048
  3. LIPITOR [Concomitant]

REACTIONS (4)
  - BACK INJURY [None]
  - WEIGHT DECREASED [None]
  - JOINT INJURY [None]
  - ACCIDENT AT WORK [None]
